FAERS Safety Report 7103743-4 (Version None)
Quarter: 2010Q4

REPORT INFORMATION
  Report Type: 
  Country: None (occurrence: None)
  Receive Date: 20101115
  Receipt Date: 20101105
  Transmission Date: 20110411
  Serious: Yes (Hospitalization)
  Sender: FDA-Public Use
  Company Number: HR-ABBOTT-10P-216-0683979-00

PATIENT
  Age: 36 Year
  Sex: Male

DRUGS (6)
  1. VALPROIC ACID [Suspect]
     Indication: BIPOLAR DISORDER
     Route: 065
  2. VALPROIC ACID [Suspect]
     Indication: MAJOR DEPRESSION
  3. CLOZAPINE [Concomitant]
     Indication: PRODUCT USED FOR UNKNOWN INDICATION
  4. LAMOTRIGINE [Concomitant]
     Indication: PRODUCT USED FOR UNKNOWN INDICATION
  5. OLANZAPINE [Concomitant]
     Indication: PRODUCT USED FOR UNKNOWN INDICATION
  6. VENLAFAXINE [Concomitant]
     Indication: PRODUCT USED FOR UNKNOWN INDICATION
     Dates: start: 20090501

REACTIONS (4)
  - ILEUS PARALYTIC [None]
  - PERICARDITIS [None]
  - RESPIRATORY FAILURE [None]
  - SEPSIS [None]
